FAERS Safety Report 7805708-3 (Version None)
Quarter: 2011Q4

REPORT INFORMATION
  Report Type: 
  Country: None (occurrence: None)
  Receive Date: 20111011
  Receipt Date: 20110929
  Transmission Date: 20120403
  Serious: No
  Sender: FDA-Public Use
  Company Number: US-BIOGENIDEC-2010BI012166

PATIENT
  Age: 39 Year
  Sex: Female

DRUGS (1)
  1. TYSABRI [Suspect]
     Indication: MULTIPLE SCLEROSIS
     Route: 042
     Dates: start: 20091209

REACTIONS (7)
  - LOWER RESPIRATORY TRACT INFECTION [None]
  - GAIT DISTURBANCE [None]
  - HEADACHE [None]
  - ABDOMINAL DISCOMFORT [None]
  - VOMITING [None]
  - BLADDER DYSFUNCTION [None]
  - DYSPHONIA [None]
